FAERS Safety Report 4811125-0 (Version None)
Quarter: 2005Q4

REPORT INFORMATION
  Report Type: 
  Country: None (occurrence: None)
  Receive Date: 20051027
  Receipt Date: 20051019
  Transmission Date: 20060501
  Serious: Yes (Hospitalization)
  Sender: FDA-Public Use
  Company Number: FRPFM-E-20050106

PATIENT
  Age: 79 Year
  Sex: Female

DRUGS (4)
  1. NAVELBINE [Suspect]
     Indication: BREAST CANCER METASTATIC
     Route: 042
     Dates: start: 20050818, end: 20050901
  2. FLUOROURACIL [Suspect]
     Indication: BREAST CANCER METASTATIC
     Route: 042
     Dates: start: 20050818, end: 20050902
  3. PLITICAN [Concomitant]
     Dates: start: 20050818, end: 20050902
  4. SOLU-MEDROL [Concomitant]
     Dates: start: 20050818, end: 20050901

REACTIONS (2)
  - CUTANEOUS VASCULITIS [None]
  - SKIN LESION [None]
